FAERS Safety Report 21406115 (Version 1)
Quarter: 2022Q4

REPORT INFORMATION
  Report Type: Spontaneous
  Country: RU (occurrence: None)
  Receive Date: 20221004
  Receipt Date: 20221004
  Transmission Date: 20230112
  Serious: Yes (Other)
  Sender: FDA-Public Use
  Company Number: RU-ROCHE-3188508

PATIENT
  Sex: Male

DRUGS (4)
  1. TECENTRIQ [Suspect]
     Active Substance: ATEZOLIZUMAB
     Indication: Bladder transitional cell carcinoma
     Route: 041
     Dates: start: 20220525
  2. GEMCITABINE [Concomitant]
     Active Substance: GEMCITABINE
     Dosage: ON DAYS 1, 8, CYCLE 21 DAYS) WERE PERFORMED AT THE , THE LAST ONE ON 07/FEB/2022.
  3. CARBOPLATIN [Concomitant]
     Active Substance: CARBOPLATIN
     Dosage: ON DAY 1
  4. KETOPROFEN [Concomitant]
     Active Substance: KETOPROFEN
     Dosage: 1 TABLET 1-2 TIMES A DAY BY MOUTH
     Route: 048
     Dates: start: 202111

REACTIONS (5)
  - Pulmonary embolism [Unknown]
  - Asthenia [Unknown]
  - Pelvic pain [Unknown]
  - Haemorrhoids [Unknown]
  - Therapy partial responder [Unknown]
